FAERS Safety Report 9267562 (Version 2)
Quarter: 2013Q2

REPORT INFORMATION
  Report Type: Spontaneous
  Country: ES (occurrence: ES)
  Receive Date: 20130502
  Receipt Date: 20130507
  Transmission Date: 20140414
  Serious: Yes (Other)
  Sender: FDA-Public Use
  Company Number: ES-GLAXOSMITHKLINE-B0888431A

PATIENT
  Age: 20 Year
  Sex: Male

DRUGS (3)
  1. TROBALT [Suspect]
     Indication: PARTIAL SEIZURES
     Dosage: 1200MG PER DAY
     Route: 048
     Dates: start: 201202
  2. VIGABATRIN [Suspect]
     Indication: PARTIAL SEIZURES
     Route: 065
  3. CARBAMAZEPINE [Concomitant]
     Indication: PARTIAL SEIZURES

REACTIONS (3)
  - Convulsion [Unknown]
  - Dizziness [Unknown]
  - Drug interaction [Unknown]
